FAERS Safety Report 11894055 (Version 1)
Quarter: 2016Q1

REPORT INFORMATION
  Report Type: Spontaneous
  Country: IL (occurrence: IL)
  Receive Date: 20160107
  Receipt Date: 20160107
  Transmission Date: 20160526
  Serious: Yes (Hospitalization)
  Sender: FDA-Public Use
  Company Number: IL-STRIDES ARCOLAB LIMITED-2015SP002633

PATIENT

DRUGS (1)
  1. ACARBOSE. [Suspect]
     Active Substance: ACARBOSE
     Indication: TYPE 2 DIABETES MELLITUS
     Dosage: 50 MG, EVERY EIGHT HOURS

REACTIONS (8)
  - Renal impairment [Recovered/Resolved]
  - Pneumoperitoneum [Recovered/Resolved]
  - Vomiting [Recovered/Resolved]
  - Portal venous gas [Recovered/Resolved]
  - Metabolic acidosis [Recovered/Resolved]
  - Constipation [Recovered/Resolved]
  - Pneumatosis intestinalis [Recovered/Resolved]
  - Abdominal tenderness [Recovered/Resolved]
